FAERS Safety Report 22075936 (Version 1)
Quarter: 2023Q1

REPORT INFORMATION
  Report Type: Spontaneous
  Country: US (occurrence: US)
  Receive Date: 20230308
  Receipt Date: 20230308
  Transmission Date: 20230418
  Serious: No
  Sender: FDA-Public Use
  Company Number: US-BAUSCHBL-2023BNL001857

PATIENT
  Sex: Female

DRUGS (2)
  1. LATANOPROST [Suspect]
     Active Substance: LATANOPROST
     Indication: Glaucoma
     Route: 047
  2. DRY EYE [Concomitant]
     Indication: Product used for unknown indication

REACTIONS (4)
  - Instillation site discharge [Unknown]
  - Vision blurred [Unknown]
  - Headache [Unknown]
  - Instillation site irritation [Unknown]
